FAERS Safety Report 9219283 (Version 1)
Quarter: 2013Q2

REPORT INFORMATION
  Report Type: Spontaneous
  Country: US (occurrence: None)
  Receive Date: 20130408
  Receipt Date: 20130408
  Transmission Date: 20140414
  Serious: No
  Sender: FDA-Public Use
  Company Number: None

PATIENT
  Age: 60 Year
  Sex: Male
  Weight: 93 kg

DRUGS (4)
  1. ANTITHYMOCYTE GLOBULIN [Suspect]
     Dates: start: 20120127
  2. BUSULFAN [Suspect]
     Dates: start: 20120128
  3. FLUDARABINE PHOSPHATE [Suspect]
     Dates: start: 20120128
  4. METHOTREXATE [Suspect]
     Dates: start: 20120203

REACTIONS (26)
  - Influenza like illness [None]
  - Respiratory failure [None]
  - Pulseless electrical activity [None]
  - Cardiac arrest [None]
  - Shock [None]
  - Blood creatinine increased [None]
  - Continuous haemodiafiltration [None]
  - Ejection fraction decreased [None]
  - Ischaemic hepatitis [None]
  - Gallbladder disorder [None]
  - Influenza B virus test positive [None]
  - Staphylococcus test positive [None]
  - Oedema peripheral [None]
  - Cyanosis [None]
  - Sepsis [None]
  - Platelet count decreased [None]
  - Peripheral ischaemia [None]
  - Conjunctival haemorrhage [None]
  - Vision blurred [None]
  - Coagulopathy [None]
  - Hypotension [None]
  - Pain in extremity [None]
  - Anaemia [None]
  - Retroperitoneal haemorrhage [None]
  - Tachycardia [None]
  - Abdominal pain [None]
